FAERS Safety Report 7527315-2 (Version None)
Quarter: 2011Q2

REPORT INFORMATION
  Report Type: 
  Country: None (occurrence: None)
  Receive Date: 20110607
  Receipt Date: 20110302
  Transmission Date: 20111010
  Serious: Yes (Hospitalization, Other)
  Sender: FDA-Public Use
  Company Number: JP-BAYER-200912230BYL

PATIENT
  Age: 43 Year
  Sex: Female
  Weight: 50 kg

DRUGS (6)
  1. EBRANTIL [Concomitant]
     Route: 048
     Dates: start: 20041006
  2. LIORESAL [Concomitant]
     Route: 048
     Dates: start: 20020101
  3. PAXIL [Concomitant]
     Route: 048
     Dates: start: 20021106
  4. BETAFERON [Suspect]
     Indication: MULTIPLE SCLEROSIS
     Dosage: 8 MIU, QOD
     Route: 058
     Dates: start: 20020501
  5. BETAFERON [Suspect]
     Route: 058
     Dates: start: 20090206, end: 20090528
  6. LEVOTHYROXINE SODIUM [Concomitant]
     Route: 048
     Dates: start: 20071025

REACTIONS (1)
  - PSORIASIS [None]
